FAERS Safety Report 10683544 (Version 1)
Quarter: 2014Q4

REPORT INFORMATION
  Report Type: Spontaneous
  Country: US (occurrence: US)
  Receive Date: 20141230
  Receipt Date: 20141230
  Transmission Date: 20150529
  Serious: Yes (Hospitalization)
  Sender: FDA-Public Use
  Company Number: US-APOTEX-2014AP006461

PATIENT
  Age: 8 Year
  Sex: Male

DRUGS (5)
  1. RISPERIDONE. [Suspect]
     Active Substance: RISPERIDONE
     Indication: HALLUCINATION, AUDITORY
     Dosage: 0.25 MG, IN THE EVENING
     Route: 065
  2. DEXMETHYLPHENIDATE [Interacting]
     Active Substance: DEXMETHYLPHENIDATE HYDROCHLORIDE
     Indication: ATTENTION DEFICIT/HYPERACTIVITY DISORDER
     Dosage: 5 MG AT NOON
     Route: 065
  3. DEXMETHYLPHENIDATE [Interacting]
     Active Substance: DEXMETHYLPHENIDATE HYDROCHLORIDE
     Indication: ATTENTION DEFICIT/HYPERACTIVITY DISORDER
     Dosage: 20 MG, Q.AM
     Route: 065
  4. GUANFACINE. [Interacting]
     Active Substance: GUANFACINE
     Indication: ATTENTION DEFICIT/HYPERACTIVITY DISORDER
     Dosage: 3 MG, Q.AM
     Route: 065
  5. GUANFACINE. [Interacting]
     Active Substance: GUANFACINE
     Dosage: 3 MG, SINGLE
     Route: 065

REACTIONS (4)
  - Bradycardia [Recovered/Resolved]
  - Drug interaction [Recovered/Resolved]
  - Hypotension [Recovered/Resolved]
  - Accidental overdose [Recovered/Resolved]
